FAERS Safety Report 13082795 (Version 4)
Quarter: 2017Q4

REPORT INFORMATION
  Report Type: Report from Study
  Country: GB (occurrence: GB)
  Receive Date: 20170103
  Receipt Date: 20171130
  Transmission Date: 20180320
  Serious: Yes (Hospitalization, Other)
  Sender: FDA-Public Use
  Company Number: GB-AMGEN-GBRSL2016185232

PATIENT
  Age: 71 Year
  Sex: Male

DRUGS (2)
  1. ARANESP [Suspect]
     Active Substance: DARBEPOETIN ALFA
     Dosage: 60 MUG, UNK
     Route: 065
  2. ARANESP [Suspect]
     Active Substance: DARBEPOETIN ALFA
     Indication: PRODUCT USED FOR UNKNOWN INDICATION
     Dosage: 80 MUG, UNK
     Route: 065

REACTIONS (4)
  - Dialysis [Not Recovered/Not Resolved]
  - Toe amputation [Unknown]
  - Thrombosis [Unknown]
  - Skin ulcer [Unknown]

NARRATIVE: CASE EVENT DATE: 201610
